FAERS Safety Report 18980943 (Version 1)
Quarter: 2021Q1

REPORT INFORMATION
  Report Type: Spontaneous
  Country: US (occurrence: US)
  Receive Date: 20210307
  Receipt Date: 20210307
  Transmission Date: 20210420
  Serious: Yes (Life-Threatening)
  Sender: FDA-Public Use
  Company Number: None

PATIENT
  Age: 46 Year
  Sex: Female

DRUGS (1)
  1. OLAPARIB. [Suspect]
     Active Substance: OLAPARIB
     Indication: OVARIAN CANCER

REACTIONS (4)
  - Anaemia [None]
  - Cytopenia [None]
  - Blood lactate dehydrogenase increased [None]
  - Myelodysplastic syndrome [None]

NARRATIVE: CASE EVENT DATE: 20200430
